FAERS Safety Report 5099197-2 (Version None)
Quarter: 2006Q3

REPORT INFORMATION
  Report Type: 
  Country: None (occurrence: None)
  Receive Date: 20060731
  Receipt Date: 20050815
  Transmission Date: 20061208
  Serious: Yes (Other)
  Sender: FDA-Public Use
  Company Number: 216154

PATIENT
  Age: 54 Year
  Sex: Female

DRUGS (5)
  1. HERCEPTIN [Suspect]
     Indication: BREAST CANCER
     Dosage: 1/WEEK
     Dates: start: 20050211
  2. ARIMIDEX [Concomitant]
  3. ATIVAN [Concomitant]
  4. VITAMINS (VITAMINS NOS) [Concomitant]
  5. FIBER (DIETARY FIBER) [Concomitant]

REACTIONS (2)
  - ASTHMA [None]
  - PULMONARY OEDEMA [None]
